FAERS Safety Report 6863823-5 (Version None)
Quarter: 2010Q3

REPORT INFORMATION
  Report Type: 
  Country: None (occurrence: None)
  Receive Date: 20100721
  Receipt Date: 20080310
  Transmission Date: 20110219
  Serious: No
  Sender: FDA-Public Use
  Company Number: US-PFIZER INC-2008023837

PATIENT
  Sex: Female
  Weight: 66.7 kg

DRUGS (3)
  1. CHANTIX [Suspect]
     Indication: SMOKING CESSATION THERAPY
     Route: 048
     Dates: start: 20071009, end: 20071201
  2. METFORMIN [Concomitant]
     Indication: DIABETES MELLITUS
  3. DRUG, UNSPECIFIED [Concomitant]

REACTIONS (2)
  - DIZZINESS [None]
  - TREMOR [None]
